FAERS Safety Report 12584828 (Version 2)
Quarter: 2016Q3

REPORT INFORMATION
  Report Type: Report from Study
  Country: US (occurrence: US)
  Receive Date: 20160722
  Receipt Date: 20160804
  Transmission Date: 20161109
  Serious: Yes (Death)
  Sender: FDA-Public Use
  Company Number: US-ACTELION-A-US2016-139367

PATIENT
  Age: 70 Year
  Sex: Male

DRUGS (15)
  1. OPSUMIT [Suspect]
     Active Substance: MACITENTAN
     Indication: PULMONARY HYPERTENSION
     Dosage: 10 MG, UNK
     Route: 048
     Dates: start: 2014, end: 20160616
  2. FUROSEMIDE. [Concomitant]
     Active Substance: FUROSEMIDE
  3. SPIRIVA [Concomitant]
     Active Substance: TIOTROPIUM BROMIDE MONOHYDRATE
  4. TIKOSYN [Concomitant]
     Active Substance: DOFETILIDE
     Dosage: 125 UNK, UNK
  5. PREVIDENT 5000 PLUS [Concomitant]
  6. OXYGEN. [Concomitant]
     Active Substance: OXYGEN
  7. SILDENAFIL. [Concomitant]
     Active Substance: SILDENAFIL
  8. ELIQUIS [Concomitant]
     Active Substance: APIXABAN
     Dosage: 5 MG, UNK
  9. ADVAIR HFA [Concomitant]
     Active Substance: FLUTICASONE PROPIONATE\SALMETEROL XINAFOATE
  10. TORSEMIDE. [Concomitant]
     Active Substance: TORSEMIDE
  11. DILTIAZEM. [Concomitant]
     Active Substance: DILTIAZEM
     Dosage: 30 MG, UNK
  12. BUTALBITAL AND ACETAMINOPHEN [Concomitant]
     Active Substance: ACETAMINOPHEN\BUTALBITAL
  13. GABAPENTIN. [Concomitant]
     Active Substance: GABAPENTIN
  14. SERTRALINE [Concomitant]
     Active Substance: SERTRALINE HYDROCHLORIDE
  15. TRAZODONE [Concomitant]
     Active Substance: TRAZODONE HYDROCHLORIDE

REACTIONS (4)
  - Bone marrow transplant [Fatal]
  - Pulmonary hypertension [Fatal]
  - Transplantation complication [Fatal]
  - Disease progression [Fatal]
